FAERS Safety Report 4282563-2 (Version None)
Quarter: 2004Q1

REPORT INFORMATION
  Report Type: 
  Country: None (occurrence: None)
  Receive Date: 20040129
  Receipt Date: 20040116
  Transmission Date: 20041129
  Serious: Yes (Death)
  Sender: FDA-Public Use
  Company Number: US-JNJFOC-20040103283

PATIENT
  Age: 81 Year
  Sex: Female

DRUGS (18)
  1. INFLIXIMAB (INFLIXIMAB, RECOMBINANT) LYOPHILIZED POWDER [Suspect]
     Indication: RHEUMATOID ARTHRITIS
     Dosage: INTRAVENOUS
     Route: 042
     Dates: start: 20020611
  2. ZESTRIL [Concomitant]
  3. PLAQUENIL (HYDROZYCHLOROQUINE PHOSPHATE) [Concomitant]
  4. ANSAID (FLURBIPROFEN)) [Concomitant]
  5. TOPROL-XL [Concomitant]
  6. LASIX [Concomitant]
  7. FOSAMAX [Concomitant]
  8. POTASSIUM (POTASSIUM) [Concomitant]
  9. OSCAL (CALCIUM CARBONATE) [Concomitant]
  10. IRON (IRON) [Concomitant]
  11. NITROGLYCERIN [Concomitant]
  12. PEPCID [Concomitant]
  13. CELLUVISC (CELLUVISC) [Concomitant]
  14. LOTOMAX (ALL OTHER THERAPEUTIC PRODUCTS) [Concomitant]
  15. ASPIRIN [Concomitant]
  16. MULTIVITAMIN (MULTIVITAMINS) [Concomitant]
  17. COMBIVENT [Concomitant]
  18. NITROGLYCERIN [Concomitant]

REACTIONS (2)
  - CARDIAC FAILURE CONGESTIVE [None]
  - PULMONARY EMBOLISM [None]
